FAERS Safety Report 7034511-X (Version None)
Quarter: 2010Q4

REPORT INFORMATION
  Report Type: 
  Country: None (occurrence: None)
  Receive Date: 20101008
  Receipt Date: 20100929
  Transmission Date: 20110411
  Serious: Yes (Other)
  Sender: FDA-Public Use
  Company Number: US-JNJFOC-20101000008

PATIENT
  Sex: Female
  Weight: 62.6 kg

DRUGS (10)
  1. TOPAMAX [Suspect]
     Indication: BIPOLAR DISORDER
     Route: 048
  2. TOPAMAX [Suspect]
     Route: 048
  3. WELLBUTRIN [Concomitant]
     Indication: SMOKING CESSATION THERAPY
     Route: 048
  4. PREMARIN [Concomitant]
     Indication: HORMONE REPLACEMENT THERAPY
     Route: 048
  5. RANITIDINE [Concomitant]
     Indication: ANTACID THERAPY
     Route: 048
  6. FLONASE [Concomitant]
     Indication: SINUS DISORDER
     Dosage: 2 SPRAYS DAILY
     Route: 045
  7. OXYCODONE [Concomitant]
     Indication: FIBROMYALGIA
     Dosage: 2 TABLETS TWICE A DAY
     Route: 048
  8. SOMA [Concomitant]
     Indication: FIBROMYALGIA
     Route: 048
  9. MIRALAX [Concomitant]
     Indication: ABNORMAL FAECES
     Route: 048
  10. CALTRATE [Concomitant]
     Indication: MINERAL SUPPLEMENTATION
     Route: 048

REACTIONS (11)
  - ABDOMINAL PAIN UPPER [None]
  - AMNESIA [None]
  - BASEDOW'S DISEASE [None]
  - CEREBROVASCULAR ACCIDENT [None]
  - DECREASED APPETITE [None]
  - GENITAL TRACT INFLAMMATION [None]
  - PROCTITIS [None]
  - SPINAL DISORDER [None]
  - STRESS [None]
  - URINARY TRACT INFECTION [None]
  - WEIGHT DECREASED [None]
